FAERS Safety Report 25825527 (Version 1)
Quarter: 2025Q3

REPORT INFORMATION
  Report Type: Spontaneous
  Country: EU (occurrence: EU)
  Receive Date: 20250919
  Receipt Date: 20250919
  Transmission Date: 20251021
  Serious: Yes (Life-Threatening, Other)
  Sender: MYLAN
  Company Number: EU-TEVA-VS-3369797

PATIENT
  Age: 23 Year
  Sex: Female

DRUGS (4)
  1. SERTRALINE [Suspect]
     Active Substance: SERTRALINE HYDROCHLORIDE
     Indication: Bipolar disorder
  2. SERTRALINE [Suspect]
     Active Substance: SERTRALINE HYDROCHLORIDE
     Route: 065
  3. SERTRALINE [Suspect]
     Active Substance: SERTRALINE HYDROCHLORIDE
     Route: 065
  4. SERTRALINE [Suspect]
     Active Substance: SERTRALINE HYDROCHLORIDE

REACTIONS (9)
  - Abortion [Recovered/Resolved]
  - Adverse event [Recovered/Resolved]
  - Vaginal haemorrhage [Recovered/Resolved]
  - Circulatory collapse [Recovering/Resolving]
  - Mental disorder [Not Recovered/Not Resolved]
  - Mental fatigue [Recovering/Resolving]
  - Blood pressure decreased [Recovering/Resolving]
  - Asthenia [Not Recovered/Not Resolved]
  - Maternal exposure timing unspecified [Unknown]

NARRATIVE: CASE EVENT DATE: 20170101
